FAERS Safety Report 8314141-X (Version None)
Quarter: 2012Q2

REPORT INFORMATION
  Report Type: 
  Country: None (occurrence: None)
  Receive Date: 20120424
  Receipt Date: 20120416
  Transmission Date: 20120825
  Serious: Yes (Hospitalization)
  Sender: FDA-Public Use
  Company Number: 2012SP011668

PATIENT
  Age: 17 Year
  Sex: Female

DRUGS (2)
  1. IMPLANON [Suspect]
     Indication: CONTRACEPTION
     Dosage: 68 MG
     Dates: end: 20120217
  2. IMPLANON [Suspect]
     Indication: CONTRACEPTION
     Dosage: 68 MG
     Dates: start: 20120217, end: 20120225

REACTIONS (5)
  - LYMPHANGITIS [None]
  - URTICARIA [None]
  - HYPERSENSITIVITY [None]
  - INFECTION [None]
  - RASH GENERALISED [None]
